FAERS Safety Report 5340477-0 (Version None)
Quarter: 2007Q2

REPORT INFORMATION
  Report Type: 
  Country: None (occurrence: None)
  Receive Date: 20070531
  Receipt Date: 20070524
  Transmission Date: 20071010
  Serious: Yes (Hospitalization)
  Sender: FDA-Public Use
  Company Number: CI-GILEAD-2007-0012030

PATIENT
  Sex: Male
  Weight: 2.5 kg

DRUGS (10)
  1. EMTRICITABINE W/TENOFOVIR DF [Suspect]
     Indication: PROPHYLAXIS AGAINST HIV INFECTION
     Route: 064
     Dates: start: 20070327, end: 20070327
  2. AZT [Suspect]
     Indication: PROPHYLAXIS AGAINST HIV INFECTION
     Route: 064
     Dates: start: 20070119, end: 20070327
  3. AZT [Suspect]
     Dates: start: 20070327, end: 20070402
  4. NEVIRAPINE [Suspect]
     Indication: PROPHYLAXIS AGAINST HIV INFECTION
     Route: 064
     Dates: start: 20070327, end: 20070327
  5. NEVIRAPINE [Suspect]
     Dates: start: 20070327, end: 20070327
  6. AMODIAQUINE [Concomitant]
     Indication: MALARIA
     Dates: start: 20070418, end: 20070424
  7. COTRIMOXAZOLE [Concomitant]
     Indication: ENTERITIS
     Dates: start: 20070418, end: 20070421
  8. ACTAPULGITE [Concomitant]
     Indication: DIARRHOEA
     Dates: start: 20070418, end: 20070421
  9. ORS [Concomitant]
     Indication: DEHYDRATION
     Dates: start: 20070418, end: 20070420
  10. PARACETAMOL [Concomitant]
     Indication: PYREXIA
     Dates: start: 20070418, end: 20070421

REACTIONS (1)
  - ANAEMIA [None]
